FAERS Safety Report 14248353 (Version 1)
Quarter: 2017Q4

REPORT INFORMATION
  Report Type: Spontaneous
  Country: US (occurrence: US)
  Receive Date: 20171204
  Receipt Date: 20171204
  Transmission Date: 20180321
  Serious: Yes (Other)
  Sender: FDA-Public Use
  Company Number: US-TEVA-2017-US-829288

PATIENT
  Sex: Female

DRUGS (1)
  1. KELNOR 1/35 [Suspect]
     Active Substance: ETHINYL ESTRADIOL\ETHYNODIOL DIACETATE
     Indication: CONTRACEPTION
     Dosage: DOSE STRENGTH: 1/0.035
     Route: 065

REACTIONS (4)
  - Poor quality sleep [Unknown]
  - Emotional disorder [Unknown]
  - Abdominal discomfort [Unknown]
  - Coeliac disease [Unknown]

NARRATIVE: CASE EVENT DATE: 201706
